FAERS Safety Report 5000396-6 (Version None)
Quarter: 2006Q2

REPORT INFORMATION
  Report Type: 
  Country: None (occurrence: None)
  Receive Date: 20060511
  Receipt Date: 20060126
  Transmission Date: 20061013
  Serious: Yes (Hospitalization)
  Sender: FDA-Public Use
  Company Number: US-MERCK-0601USA03604

PATIENT
  Age: 69 Year
  Sex: Male

DRUGS (4)
  1. VIOXX [Suspect]
     Indication: ARTHRITIS
     Route: 048
     Dates: start: 20000101, end: 20040901
  2. VIOXX [Suspect]
     Indication: SPINAL COLUMN STENOSIS
     Route: 048
     Dates: start: 20000101, end: 20040901
  3. IBUPROFEN [Concomitant]
     Indication: ARTHRITIS
     Route: 048
  4. ASPIRIN [Concomitant]
     Indication: ARTHRITIS
     Route: 048

REACTIONS (11)
  - ABDOMINAL PAIN [None]
  - CEREBROVASCULAR DISORDER [None]
  - CHEST PAIN [None]
  - CHRONIC OBSTRUCTIVE PULMONARY DISEASE [None]
  - EXCORIATION [None]
  - FALL [None]
  - GASTRITIS [None]
  - LACERATION [None]
  - THYROID DISORDER [None]
  - TRANSIENT ISCHAEMIC ATTACK [None]
  - WEIGHT INCREASED [None]
